FAERS Safety Report 9335015 (Version 2)
Quarter: 2013Q4

REPORT INFORMATION
  Report Type: Spontaneous
  Country: JP (occurrence: JP)
  Receive Date: 20130606
  Receipt Date: 20131119
  Transmission Date: 20140711
  Serious: Yes (Other)
  Sender: FDA-Public Use
  Company Number: PHHY2013JP052157

PATIENT
  Age: 37 Year
  Sex: Female
  Weight: 41 kg

DRUGS (2)
  1. APRESOLINE [Suspect]
     Indication: BLOOD PRESSURE INADEQUATELY CONTROLLED
     Dosage: 30 MG
     Route: 048
  2. METHYLDOPA [Concomitant]
     Indication: BLOOD PRESSURE INADEQUATELY CONTROLLED
     Dosage: 750 MG, DAILY

REACTIONS (11)
  - Swelling [Unknown]
  - Hepatic enzyme increased [Unknown]
  - Protein urine present [Unknown]
  - Maternal exposure during pregnancy [Unknown]
  - Premature labour [Unknown]
  - Myasthenia gravis [Unknown]
  - Dysphagia [Unknown]
  - Platelet count decreased [Unknown]
  - Bradycardia [Unknown]
  - Weight increased [Unknown]
  - Oliguria [Unknown]
